FAERS Safety Report 7347315-5 (Version None)
Quarter: 2011Q1

REPORT INFORMATION
  Report Type: 
  Country: None (occurrence: None)
  Receive Date: 20110303
  Receipt Date: 20110218
  Transmission Date: 20110831
  Serious: Yes (Other)
  Sender: FDA-Public Use
  Company Number: 026552

PATIENT
  Age: 52 Year
  Sex: Female
  Weight: 74 kg

DRUGS (8)
  1. SINGULAIR [Concomitant]
  2. METHOTREXATE [Suspect]
     Dosage: 10 MG 1X/WEEK ORAL
     Route: 048
     Dates: start: 20101201
  3. ADVAIR DISKUS 100/50 [Concomitant]
  4. LAMICTAL [Suspect]
     Indication: EPILEPSY
     Dosage: 400 MG
     Dates: start: 20090601
  5. PAXIL [Concomitant]
  6. LACOSAMIDE [Suspect]
     Indication: EPILEPSY
     Dosage: 400 MEQ ORAL
     Route: 048
     Dates: start: 20100110
  7. ALBUTEROL [Concomitant]
  8. SYNTHROID [Concomitant]

REACTIONS (1)
  - STEVENS-JOHNSON SYNDROME [None]
